FAERS Safety Report 6266487-7 (Version None)
Quarter: 2009Q3

REPORT INFORMATION
  Report Type: 
  Country: None (occurrence: None)
  Receive Date: 20090713
  Receipt Date: 20090706
  Transmission Date: 20100115
  Serious: Yes (Hospitalization)
  Sender: FDA-Public Use
  Company Number: IT-AMGEN-QUU354295

PATIENT
  Sex: Female

DRUGS (3)
  1. GRANULOKINE [Suspect]
     Indication: NEUTROPENIA
     Route: 058
     Dates: start: 20090422
  2. ZYLORIC [Concomitant]
     Route: 048
     Dates: start: 20040101
  3. MYCOSTATIN [Concomitant]
     Route: 048
     Dates: start: 20060101

REACTIONS (2)
  - ANAEMIA [None]
  - THROMBOCYTOPENIA [None]
